FAERS Safety Report 7050199-6 (Version None)
Quarter: 2010Q4

REPORT INFORMATION
  Report Type: 
  Country: None (occurrence: None)
  Receive Date: 20101013
  Receipt Date: 20100902
  Transmission Date: 20110411
  Serious: Yes (Life-Threatening, Hospitalization, Other)
  Sender: FDA-Public Use
  Company Number: 2010AC000504

PATIENT
  Age: 93 Year
  Sex: Female

DRUGS (45)
  1. DIGOXIN [Suspect]
     Dosage: 0.125 MG; QD; PO
     Route: 048
  2. DIGOXIN [Suspect]
     Dosage: 0.125 MG; PO
     Route: 048
     Dates: start: 20011101
  3. DYAZIDE [Concomitant]
  4. ACIPHEX [Concomitant]
  5. FOSAMEX [Concomitant]
  6. DILTIAZEM [Concomitant]
  7. COSOPT [Concomitant]
  8. TRIAMTERENE [Concomitant]
  9. POTASSIUM CHLORIDE [Concomitant]
  10. PROTONIX [Concomitant]
  11. FUROSEMIDE [Concomitant]
  12. NAMENDA [Concomitant]
  13. COREG [Concomitant]
  14. ISOSORBIDE DINITRATE [Concomitant]
  15. NITROGLYCERIN [Concomitant]
  16. TRAVATAN [Concomitant]
  17. LORAZEPAM [Concomitant]
  18. BIOTENE [Concomitant]
  19. ALENDRONATE SODIUM [Concomitant]
  20. ASPIRIN [Concomitant]
  21. OMEPRAZOLE [Concomitant]
  22. SIMETHICONE [Concomitant]
  23. CARVEDILOL [Concomitant]
  24. IQUIX [Concomitant]
  25. COUMADIN [Concomitant]
  26. IMDUR [Concomitant]
  27. METAMUCIL-2 [Concomitant]
  28. MYLANTA [Concomitant]
  29. PRILOSEC [Concomitant]
  30. REFRESH PLUS [Concomitant]
  31. TEARS NATURALE [Concomitant]
  32. VESICARE [Concomitant]
  33. CALCIUM WITH VIAMIN D [Concomitant]
  34. SALINE NASAL [Concomitant]
  35. DETROL LA [Concomitant]
  36. LEVAQUIN [Concomitant]
  37. TRAVOPROST [Concomitant]
  38. *AQUA TEARS [Concomitant]
  39. MILK OF MAGNESIA TAB [Concomitant]
  40. ACETAMINOPHEN [Concomitant]
  41. COLACE [Concomitant]
  42. GLAUCOMA EYE DROPS [Concomitant]
  43. NORCO [Concomitant]
  44. NITROSTAT [Concomitant]
  45. TRAVATAN [Concomitant]

REACTIONS (18)
  - ATRIAL FIBRILLATION [None]
  - ATRIAL FLUTTER [None]
  - BRADYCARDIA [None]
  - CEREBRAL HAEMORRHAGE [None]
  - DYSPHAGIA [None]
  - EPISTAXIS [None]
  - FALL [None]
  - FATIGUE [None]
  - HEART RATE IRREGULAR [None]
  - HYPERTENSION [None]
  - HYPOKALAEMIA [None]
  - LETHARGY [None]
  - MULTIPLE INJURIES [None]
  - PAIN IN EXTREMITY [None]
  - ROTATOR CUFF SYNDROME [None]
  - THERAPEUTIC AGENT TOXICITY [None]
  - TYPE 2 DIABETES MELLITUS [None]
  - WRIST FRACTURE [None]
